FAERS Safety Report 6889426-4 (Version None)
Quarter: 2010Q3

REPORT INFORMATION
  Report Type: 
  Country: None (occurrence: None)
  Receive Date: 20100730
  Receipt Date: 20080220
  Transmission Date: 20110219
  Serious: No
  Sender: FDA-Public Use
  Company Number: US-PFIZER INC-2008007684

PATIENT
  Sex: Male
  Weight: 86.18 kg

DRUGS (6)
  1. LIPITOR [Suspect]
     Indication: BLOOD CHOLESTEROL INCREASED
     Route: 048
     Dates: start: 19991213
  2. LIPITOR [Suspect]
     Indication: DYSLIPIDAEMIA
  3. MIRTAZAPINE [Concomitant]
     Route: 048
  4. TERAZOSIN HCL [Concomitant]
     Route: 048
  5. PAXIL [Concomitant]
     Route: 048
  6. LAMICTAL [Concomitant]

REACTIONS (1)
  - BLOOD TESTOSTERONE DECREASED [None]
